FAERS Safety Report 25018256 (Version 1)
Quarter: 2025Q1

REPORT INFORMATION
  Report Type: Spontaneous
  Country: IE (occurrence: IE)
  Receive Date: 20250227
  Receipt Date: 20250227
  Transmission Date: 20250409
  Serious: No
  Sender: TOLMAR
  Company Number: IE-RECGATEWAY-2025000762

PATIENT
  Sex: Male

DRUGS (4)
  1. ELIGARD [Suspect]
     Active Substance: LEUPROLIDE ACETATE
     Indication: Prostate cancer
     Dosage: 22.5 MILLIGRAM, Q 1 MONTH
     Route: 058
     Dates: start: 202410
  2. ELIGARD [Suspect]
     Active Substance: LEUPROLIDE ACETATE
     Dosage: 22.5 MILLIGRAM, Q 1 MONTH
     Route: 058
     Dates: start: 202411
  3. ELIGARD [Suspect]
     Active Substance: LEUPROLIDE ACETATE
     Dosage: 22.5 MILLIGRAM, Q 1 MONTH
     Route: 058
     Dates: start: 202412
  4. ELIGARD [Suspect]
     Active Substance: LEUPROLIDE ACETATE
     Indication: Prostate cancer

REACTIONS (2)
  - Off label use [Unknown]
  - Extra dose administered [Unknown]

NARRATIVE: CASE EVENT DATE: 20241001
